FAERS Safety Report 8465583-3 (Version None)
Quarter: 2012Q2

REPORT INFORMATION
  Report Type: 
  Country: None (occurrence: None)
  Receive Date: 20120323
  Receipt Date: 20111025
  Transmission Date: 20120825
  Serious: Yes (Other)
  Sender: FDA-Public Use
  Company Number: 163-21880-11101769

PATIENT
  Age: 74 Year
  Sex: Male
  Weight: 76.2043 kg

DRUGS (8)
  1. FOLIC ACID [Concomitant]
  2. CALTRATE PLUS VITAMIN D (LEKOVIT CA) [Concomitant]
  3. ZOCOR [Concomitant]
  4. MERFORMIN (METFORMIN) [Concomitant]
  5. REVLIMID [Suspect]
     Indication: MYELODYSPLASTIC SYNDROME
     Dosage: 10 MG, 1 IN 1 D, PO
     Route: 048
     Dates: start: 20110501, end: 20111001
  6. ENALAPRIL MALEATE [Concomitant]
  7. ASPIRIN [Concomitant]
  8. CENTRUM SILVER (CENTRUM SILVER) [Concomitant]

REACTIONS (3)
  - DRUG INEFFECTIVE [None]
  - MYELODYSPLASTIC SYNDROME [None]
  - DISEASE PROGRESSION [None]
